FAERS Safety Report 5707043-6 (Version None)
Quarter: 2008Q2

REPORT INFORMATION
  Report Type: 
  Country: None (occurrence: None)
  Receive Date: 20080416
  Receipt Date: 20080411
  Transmission Date: 20081010
  Serious: Yes (Death)
  Sender: FDA-Public Use
  Company Number: B0511138A

PATIENT
  Age: 74 Year
  Sex: Female

DRUGS (11)
  1. ARIXTRA [Suspect]
     Indication: THROMBOSIS PROPHYLAXIS
     Dosage: 2.5MG PER DAY
     Route: 058
     Dates: start: 20080214, end: 20080223
  2. FRAGMIN [Suspect]
     Indication: THROMBOSIS PROPHYLAXIS
     Dosage: 2500IU PER DAY
     Route: 065
     Dates: start: 20080213, end: 20080214
  3. SODIUM HEPARIN [Suspect]
     Indication: DRUG USE FOR UNKNOWN INDICATION
     Dosage: 600IU PER DAY
     Route: 065
     Dates: start: 20080228, end: 20080228
  4. PANSPORIN [Concomitant]
     Indication: INFECTION PROPHYLAXIS
     Dosage: 2G PER DAY
     Dates: start: 20080213, end: 20080217
  5. FLOMOX [Concomitant]
     Indication: INFECTION PROPHYLAXIS
     Dosage: 300MG PER DAY
     Route: 048
     Dates: start: 20080218, end: 20080220
  6. URSO 250 [Concomitant]
     Route: 048
     Dates: end: 20080228
  7. RANITAC [Concomitant]
     Route: 048
     Dates: end: 20080228
  8. MICARDIS [Concomitant]
     Route: 048
     Dates: end: 20080228
  9. HYPEN [Concomitant]
     Route: 048
  10. ISALON [Concomitant]
     Route: 048
  11. ESPO [Concomitant]
     Dosage: 24IU3 PER DAY
     Route: 065
     Dates: start: 20080225, end: 20080225

REACTIONS (12)
  - ALTERED STATE OF CONSCIOUSNESS [None]
  - BLEEDING TIME PROLONGED [None]
  - CEREBRAL HAEMORRHAGE [None]
  - CEREBROVASCULAR ACCIDENT [None]
  - HAEMOGLOBIN DECREASED [None]
  - HAEMORRHAGIC DIATHESIS [None]
  - HEMIPLEGIA [None]
  - HEPARIN-INDUCED THROMBOCYTOPENIA [None]
  - PLATELET COUNT DECREASED [None]
  - PUPILS UNEQUAL [None]
  - RED BLOOD CELL COUNT DECREASED [None]
  - VOMITING [None]
